FAERS Safety Report 6294895-7 (Version None)
Quarter: 2009Q3

REPORT INFORMATION
  Report Type: 
  Country: None (occurrence: None)
  Receive Date: 20090803
  Receipt Date: 20090728
  Transmission Date: 20100115
  Serious: Yes (Hospitalization)
  Sender: FDA-Public Use
  Company Number: JP-BAYER-200912106BYL

PATIENT
  Age: 81 Year
  Sex: Male
  Weight: 56 kg

DRUGS (6)
  1. NEXAVAR [Suspect]
     Indication: HEPATIC NEOPLASM MALIGNANT NON-RESECTABLE
     Dosage: UNIT DOSE: 200 MG
     Route: 048
     Dates: start: 20090612, end: 20090620
  2. URSO 250 [Concomitant]
     Indication: HEPATIC CIRRHOSIS
     Dosage: UNIT DOSE: 100 MG
     Route: 048
  3. ASPIRIN [Concomitant]
     Dosage: UNIT DOSE: 100 MG
     Route: 048
  4. DIOVAN [Concomitant]
     Dosage: UNIT DOSE: 40 MG
     Route: 048
  5. AMLODIPINE [Concomitant]
     Dosage: UNIT DOSE: 2.5 MG
     Route: 048
  6. SHAKUYAKUKANZOTO [Concomitant]
     Route: 048

REACTIONS (3)
  - DIARRHOEA [None]
  - ENCEPHALOPATHY [None]
  - RASH [None]
